FAERS Safety Report 4885754-2 (Version None)
Quarter: 2006Q1

REPORT INFORMATION
  Report Type: 
  Country: None (occurrence: None)
  Receive Date: 20060117
  Receipt Date: 20060103
  Transmission Date: 20060701
  Serious: Yes (Congenital Anomaly)
  Sender: FDA-Public Use
  Company Number: 33515

PATIENT
  Sex: Male

DRUGS (1)
  1. TRAVATAN SOLUTION / TIMOLOL0.5% SOLUTION [Suspect]
     Dosage: TRANS-PLACENTAL
     Route: 064

REACTIONS (7)
  - CLEFT LIP [None]
  - DRUG EXPOSURE DURING PREGNANCY [None]
  - FACIAL DYSMORPHISM [None]
  - FACIAL PALSY [None]
  - FOETAL GROWTH RETARDATION [None]
  - LARYNGEAL DISORDER [None]
  - MULTIPLE CONGENITAL ABNORMALITIES [None]
